FAERS Safety Report 5614206-7 (Version None)
Quarter: 2008Q1

REPORT INFORMATION
  Report Type: 
  Country: None (occurrence: None)
  Receive Date: 20080205
  Receipt Date: 20080131
  Transmission Date: 20080703
  Serious: Yes (Death, Hospitalization, Disabling)
  Sender: FDA-Public Use
  Company Number: JP-BRISTOL-MYERS SQUIBB COMPANY-13568746

PATIENT
  Age: 61 Year
  Sex: Female

DRUGS (5)
  1. TAXOL [Suspect]
     Indication: OVARIAN EPITHELIAL CANCER
     Dosage: 21-SEP-2006 TO 21-SEP-2006 DRUG WAS ADMINISTRATED.
     Route: 041
     Dates: start: 20061019, end: 20061019
  2. PARAPLATIN [Suspect]
     Indication: OVARIAN CANCER
     Dosage: 21SEP2006 TO 21SEP2006 DRUG WAS ADMINISTRATED
     Route: 041
     Dates: start: 20061019, end: 20061019
  3. LEVODOPA + BENSERAZIDE HCL [Concomitant]
     Route: 048
  4. ARTANE [Concomitant]
     Route: 048
  5. CABERGOLINE [Concomitant]
     Route: 048

REACTIONS (3)
  - CEREBRAL INFARCTION [None]
  - INAPPROPRIATE ANTIDIURETIC HORMONE SECRETION [None]
  - MALIGNANT NEOPLASM PROGRESSION [None]
